FAERS Safety Report 19058988 (Version 2)
Quarter: 2021Q2

REPORT INFORMATION
  Report Type: Spontaneous
  Country: US (occurrence: US)
  Receive Date: 20210325
  Receipt Date: 20210426
  Transmission Date: 20210717
  Serious: No
  Sender: FDA-Public Use
  Company Number: US-BEH-2021129575

PATIENT
  Age: 44 Year
  Sex: Female

DRUGS (2)
  1. RIASTAP [Suspect]
     Active Substance: FIBRINOGEN HUMAN
     Indication: FACTOR I DEFICIENCY
     Dosage: 2000 TO 2300 IU, BIW
     Route: 042
     Dates: start: 202001
  2. RIASTAP [Suspect]
     Active Substance: FIBRINOGEN HUMAN
     Indication: PROPHYLAXIS

REACTIONS (3)
  - No adverse event [Unknown]
  - Dental care [Not Recovered/Not Resolved]
  - Off label use [Unknown]

NARRATIVE: CASE EVENT DATE: 202103
